FAERS Safety Report 8390909-9 (Version None)
Quarter: 2012Q2

REPORT INFORMATION
  Report Type: 
  Country: None (occurrence: None)
  Receive Date: 20120529
  Receipt Date: 20120518
  Transmission Date: 20120825
  Serious: Yes (Other)
  Sender: FDA-Public Use
  Company Number: US-FRI-1000030617

PATIENT
  Age: 48 Year
  Sex: Female
  Weight: 63.59 kg

DRUGS (1)
  1. SAVELLA [Suspect]
     Indication: PAIN
     Dates: start: 20111226, end: 20120110

REACTIONS (8)
  - MOOD SWINGS [None]
  - CRYING [None]
  - ANXIETY [None]
  - DIZZINESS [None]
  - OFF LABEL USE [None]
  - THERMAL BURN [None]
  - DEPRESSION [None]
  - HEADACHE [None]
